FAERS Safety Report 4655941-7 (Version None)
Quarter: 2005Q2

REPORT INFORMATION
  Report Type: 
  Country: None (occurrence: None)
  Receive Date: 20050505
  Receipt Date: 20050420
  Transmission Date: 20051028
  Serious: Yes (Hospitalization)
  Sender: FDA-Public Use
  Company Number: JP_050406400

PATIENT
  Age: 25 Year
  Sex: Female

DRUGS (2)
  1. HUMULIN R [Suspect]
     Dosage: 150 U OTHER
  2. HUMULIN N [Suspect]
     Dosage: 150 U OTHER

REACTIONS (3)
  - HYPOGLYCAEMIA [None]
  - INTENTIONAL MISUSE [None]
  - SUICIDE ATTEMPT [None]
